FAERS Safety Report 17198437 (Version 2)
Quarter: 2020Q1

REPORT INFORMATION
  Report Type: Spontaneous
  Country: CZ (occurrence: CZ)
  Receive Date: 20191225
  Receipt Date: 20200217
  Transmission Date: 20200409
  Serious: Yes (Death, Life-Threatening, Hospitalization, Other)
  Sender: FDA-Public Use
  Company Number: CZ-ACCORD-167355

PATIENT
  Sex: Male

DRUGS (10)
  1. TRIAPRIDAL [Suspect]
     Active Substance: TIAPRIDE HYDROCHLORIDE
     Indication: DELIRIUM
     Dosage: 0-0-1 (STRENGTH-100 MG) (2-2-2-2)
     Route: 048
  2. HALOPERIDOL. [Suspect]
     Active Substance: HALOPERIDOL
     Indication: AGGRESSION
     Dosage: 5-0-5 GTTS AND 10-0-10 GTTS
     Route: 048
  3. VASOCARDIN [Concomitant]
     Active Substance: METOPROLOL
     Dosage: 1-0-1
     Route: 048
  4. KVENTIAX [Suspect]
     Active Substance: QUETIAPINE FUMARATE
     Indication: PRODUCT USED FOR UNKNOWN INDICATION
     Dosage: 100 MG
     Route: 048
  5. AMANTADINE. [Suspect]
     Active Substance: AMANTADINE HYDROCHLORIDE
     Indication: PRODUCT USED FOR UNKNOWN INDICATION
  6. DANTROLENE/DANTROLENE SODIUM [Suspect]
     Active Substance: DANTROLENE
     Indication: PRODUCT USED FOR UNKNOWN INDICATION
     Dosage: 1 AMP. I. M.
     Route: 030
  7. TRIAPRIDAL [Suspect]
     Active Substance: TIAPRIDE HYDROCHLORIDE
     Indication: AGGRESSION
     Dosage: 2-2-2-2
  8. ESCITALOPRAM [Suspect]
     Active Substance: ESCITALOPRAM OXALATE
     Indication: DELIRIUM
     Dosage: 1-0-0
     Route: 048
  9. NOVALGIN (METAMIZOLE SODIUM) [Suspect]
     Active Substance: METAMIZOLE SODIUM
     Indication: DELIRIUM
     Dosage: 1-1-1
     Route: 048
  10. HALOPERIDOL. [Suspect]
     Active Substance: HALOPERIDOL
     Indication: AGGRESSION
     Dosage: 5-0-5 GTTS AND 10-0-10 GTTS
     Route: 048

REACTIONS (1)
  - Neuroleptic malignant syndrome [Fatal]
